FAERS Safety Report 9216345 (Version 1)
Quarter: 2013Q2

REPORT INFORMATION
  Report Type: Spontaneous
  Country: FR (occurrence: None)
  Receive Date: 20130404
  Receipt Date: 20130404
  Transmission Date: 20140414
  Serious: Yes (Hospitalization)
  Sender: FDA-Public Use
  Company Number: AUR-APL-2013-02744

PATIENT
  Age: 64 Year
  Sex: Male

DRUGS (11)
  1. SIMVASTATIN (SIMVASTATIN) [Suspect]
     Indication: PRODUCT USED FOR UNKNOWN INDICATION
  2. REVATIO (SILDENAFIL CITRATE) (UNKNOWN) (SILDENAFIL) [Suspect]
     Indication: PRODUCT USED FOR UNKNOWN INDICATION
     Route: 048
  3. TRACLEER (BOSENTAN) [Suspect]
     Indication: PRODUCT USED FOR UNKNOWN INDICATION
     Route: 048
  4. PLAVIX (CLOPIDOGREL) [Suspect]
     Indication: PRODUCT USED FOR UNKNOWN INDICATION
  5. LASILIX (FUROSEMIDE) [Concomitant]
  6. SPIRONOLACTONE (SPIRONOLACTONE) [Concomitant]
  7. DIFFU K(POTASSIUM CHLORIDE) [Concomitant]
  8. XYZAL [Concomitant]
  9. NOVONORM (REPAGLINIDE) [Concomitant]
  10. VENTAVIS (ILOPROST) [Concomitant]
  11. INSULIN (INSULIN) [Concomitant]

REACTIONS (4)
  - Microcytic anaemia [None]
  - Cardiac failure [None]
  - Oedema peripheral [None]
  - Gastrointestinal ulcer [None]
